FAERS Safety Report 7936850-4 (Version None)
Quarter: 2011Q4

REPORT INFORMATION
  Report Type: 
  Country: None (occurrence: None)
  Receive Date: 20111123
  Receipt Date: 20111123
  Transmission Date: 20120403
  Serious: Yes (Life-Threatening, Hospitalization)
  Sender: FDA-Public Use
  Company Number: None

PATIENT
  Sex: Female

DRUGS (1)
  1. ADDERALL 5 [Suspect]

REACTIONS (5)
  - INCORRECT DOSE ADMINISTERED [None]
  - CHEST PAIN [None]
  - MANIA [None]
  - HYPOAESTHESIA [None]
  - DEPRESSION [None]
